FAERS Safety Report 8142553-6 (Version None)
Quarter: 2012Q1

REPORT INFORMATION
  Report Type: 
  Country: None (occurrence: None)
  Receive Date: 20120216
  Receipt Date: 20120209
  Transmission Date: 20120608
  Serious: Yes (Other)
  Sender: FDA-Public Use
  Company Number: BG-ROXANE LABORATORIES, INC.-2012-RO-00642RO

PATIENT
  Age: 53 Year
  Sex: Female

DRUGS (3)
  1. CYCLOPHOSPHAMIDE [Suspect]
     Indication: SYSTEMIC SCLEROSIS
     Dates: start: 20010101, end: 20030101
  2. METHYLPREDNISOLONE [Suspect]
     Indication: SYSTEMIC SCLEROSIS
     Dates: start: 20010101, end: 20030101
  3. PREDNISOLONE [Suspect]
     Indication: SYSTEMIC SCLEROSIS

REACTIONS (2)
  - DISSEMINATED TUBERCULOSIS [None]
  - HYPERCORTICOIDISM [None]
